FAERS Safety Report 24542794 (Version 2)
Quarter: 2025Q1

REPORT INFORMATION
  Report Type: Spontaneous
  Country: US (occurrence: US)
  Receive Date: 20241024
  Receipt Date: 20250201
  Transmission Date: 20250409
  Serious: No
  Sender: GLENMARK
  Company Number: US-GLENMARK PHARMACEUTICALS-2024GMK094669

PATIENT

DRUGS (2)
  1. RYALTRIS [Suspect]
     Active Substance: MOMETASONE FUROATE MONOHYDRATE\OLOPATADINE HYDROCHLORIDE
     Indication: Product used for unknown indication
     Dosage: UNK, BID (INSTILL 1 TO 2 SPRAYS INTO EACH NOSTRIL TWICE A DAY RINSE MOUTH AFTER USING)
     Route: 045
     Dates: start: 20240702
  2. RYALTRIS [Suspect]
     Active Substance: MOMETASONE FUROATE MONOHYDRATE\OLOPATADINE HYDROCHLORIDE
     Route: 065

REACTIONS (3)
  - Product use complaint [Unknown]
  - Product prescribing issue [Unknown]
  - Product closure issue [Unknown]

NARRATIVE: CASE EVENT DATE: 20241001
